FAERS Safety Report 12544025 (Version 1)
Quarter: 2016Q3

REPORT INFORMATION
  Report Type: Spontaneous
  Country: US (occurrence: US)
  Receive Date: 20160711
  Receipt Date: 20160711
  Transmission Date: 20161109
  Serious: Yes (Other)
  Sender: FDA-Public Use
  Company Number: US-GLAXOSMITHKLINE-US2016097517

PATIENT
  Age: 68 Year
  Sex: Female

DRUGS (6)
  1. VENTOLIN [Concomitant]
     Active Substance: ALBUTEROL SULFATE
  2. FLOVENT [Suspect]
     Active Substance: FLUTICASONE PROPIONATE
     Dosage: 220MCG, 2 PUFF(S), UNK
     Route: 055
     Dates: start: 201603, end: 20160706
  3. FLOVENT [Suspect]
     Active Substance: FLUTICASONE PROPIONATE
     Dosage: 110MCG
     Route: 055
  4. ATARAX [Concomitant]
     Active Substance: HYDROXYZINE\HYDROXYZINE HYDROCHLORIDE
  5. FLOVENT [Suspect]
     Active Substance: FLUTICASONE PROPIONATE
     Indication: ASTHMA
     Dosage: 220MCG
     Route: 055
     Dates: start: 2014
  6. FLOVENT [Suspect]
     Active Substance: FLUTICASONE PROPIONATE
     Dosage: 44MCG
     Route: 055
     Dates: end: 201603

REACTIONS (5)
  - Dyspnoea [Not Recovered/Not Resolved]
  - Cataract operation [Unknown]
  - Eye inflammation [Unknown]
  - Drug ineffective [Unknown]
  - Total lung capacity abnormal [Not Recovered/Not Resolved]

NARRATIVE: CASE EVENT DATE: 20160627
